FAERS Safety Report 14875839 (Version 1)
Quarter: 2018Q2

REPORT INFORMATION
  Report Type: Spontaneous
  Country: US (occurrence: US)
  Receive Date: 20180510
  Receipt Date: 20180510
  Transmission Date: 20180711
  Serious: Yes (Hospitalization)
  Sender: FDA-Public Use
  Company Number: US-TEVA-2018-US-890319

PATIENT
  Age: 60 Year
  Sex: Female

DRUGS (6)
  1. BUMETANIDE. [Concomitant]
     Active Substance: BUMETANIDE
     Route: 065
  2. CICLOSPORIN [Suspect]
     Active Substance: CYCLOSPORINE
     Indication: GLOMERULONEPHRITIS MEMBRANOUS
     Route: 065
  3. SULFAMETHOXAZOLE-TRIMETHOPRIM [Concomitant]
     Active Substance: SULFAMETHOXAZOLE\TRIMETHOPRIM
     Indication: ANTIBIOTIC PROPHYLAXIS
     Route: 065
  4. PREDNISONE. [Concomitant]
     Active Substance: PREDNISONE
     Route: 065
  5. COLCHICINE. [Interacting]
     Active Substance: COLCHICINE
     Indication: PROPHYLAXIS
     Route: 065
  6. PRAVASTATIN. [Concomitant]
     Active Substance: PRAVASTATIN
     Route: 065

REACTIONS (3)
  - Myopathy toxic [Recovering/Resolving]
  - Drug interaction [Recovering/Resolving]
  - Rhabdomyolysis [Recovering/Resolving]
